FAERS Safety Report 10058238 (Version 1)
Quarter: 2014Q2

REPORT INFORMATION
  Report Type: Report from Study
  Country: US (occurrence: US)
  Receive Date: 20140404
  Receipt Date: 20140404
  Transmission Date: 20141212
  Serious: Yes (Other)
  Sender: FDA-Public Use
  Company Number: US-JNJFOC-20140318092

PATIENT
  Sex: Female
  Weight: 85.73 kg

DRUGS (8)
  1. REMICADE [Suspect]
     Indication: RHEUMATOID ARTHRITIS
     Route: 042
     Dates: start: 2011
  2. CYMBALTA [Concomitant]
     Indication: STRESS
     Route: 048
     Dates: start: 2011
  3. BENICAR [Concomitant]
     Indication: BLOOD PRESSURE
     Route: 048
     Dates: start: 2011
  4. LANSOPRAZOLE [Concomitant]
     Indication: GASTROOESOPHAGEAL REFLUX DISEASE
     Route: 048
     Dates: start: 2011
  5. METHYLPREDNISOLONE [Concomitant]
     Indication: ARTHRITIS
     Route: 048
     Dates: start: 2011
  6. METHOTREXATE [Concomitant]
     Indication: IMMUNE SYSTEM DISORDER
     Route: 048
     Dates: start: 2011
  7. MELOXICAM [Concomitant]
     Indication: PAIN
     Route: 048
     Dates: start: 2011
  8. PROBIOTIC [Concomitant]
     Route: 048
     Dates: start: 2011

REACTIONS (2)
  - Cataract [Not Recovered/Not Resolved]
  - Basal cell carcinoma [Recovered/Resolved]
